FAERS Safety Report 9796297 (Version 1)
Quarter: 2014Q1

REPORT INFORMATION
  Report Type: Spontaneous
  Country: IT (occurrence: IT)
  Receive Date: 20140103
  Receipt Date: 20140103
  Transmission Date: 20141002
  Serious: Yes (Other)
  Sender: FDA-Public Use
  Company Number: IT-CUBIST PHARMACEUTICAL, INC.-2013CBST001416

PATIENT
  Sex: 0

DRUGS (2)
  1. CUBICIN [Suspect]
     Indication: MENINGITIS STAPHYLOCOCCAL
     Dosage: 10 MG/KG, QD
     Route: 042
  2. TRIMETHOPRIM SULFAMETHOXAZOLE [Interacting]
     Indication: MENINGITIS STAPHYLOCOCCAL
     Dosage: 5 MG/KG, Q6H
     Route: 042

REACTIONS (1)
  - Drug interaction [Unknown]
